FAERS Safety Report 7465385-0 (Version None)
Quarter: 2011Q2

REPORT INFORMATION
  Report Type: 
  Country: None (occurrence: None)
  Receive Date: 20110505
  Receipt Date: 20110505
  Transmission Date: 20111010
  Serious: Yes (Death)
  Sender: FDA-Public Use
  Company Number: None

PATIENT
  Sex: Male

DRUGS (2)
  1. GEODON [Suspect]
     Indication: CONDITION AGGRAVATED
     Dosage: 80MG Q HS PO SEVERAL MONTHS
     Route: 048
  2. GEODON [Suspect]
     Indication: MAJOR DEPRESSION
     Dosage: 80MG Q HS PO SEVERAL MONTHS
     Route: 048

REACTIONS (1)
  - DIABETIC KETOACIDOSIS [None]
